FAERS Safety Report 7287596-X (Version None)
Quarter: 2011Q1

REPORT INFORMATION
  Report Type: 
  Country: None (occurrence: None)
  Receive Date: 20110208
  Receipt Date: 20110208
  Transmission Date: 20110831
  Serious: Yes (Other)
  Sender: FDA-Public Use
  Company Number: None

PATIENT
  Age: 35 Year
  Sex: Female
  Weight: 59.8748 kg

DRUGS (1)
  1. CEFDINIR [Suspect]
     Indication: SINUSITIS
     Dosage: 600 MG 1 DAY PO
     Route: 048
     Dates: start: 20110127, end: 20110202

REACTIONS (9)
  - CHILLS [None]
  - ABDOMINAL PAIN [None]
  - TENDERNESS [None]
  - VISION BLURRED [None]
  - DIARRHOEA HAEMORRHAGIC [None]
  - MALAISE [None]
  - ARTHRALGIA [None]
  - HEADACHE [None]
  - PYREXIA [None]
